FAERS Safety Report 23397326 (Version 1)
Quarter: 2024Q1

REPORT INFORMATION
  Report Type: Report from Study
  Country: CA (occurrence: CA)
  Receive Date: 20240112
  Receipt Date: 20240112
  Transmission Date: 20240409
  Serious: Yes (Other)
  Sender: FDA-Public Use
  Company Number: CA-OTSUKA-2023_027051

PATIENT
  Age: 34 Year
  Sex: Male

DRUGS (2)
  1. TOLVAPTAN [Suspect]
     Active Substance: TOLVAPTAN
     Indication: Congenital cystic kidney disease
     Dosage: 45 MG, QD
     Route: 048
     Dates: start: 20230929
  2. TOLVAPTAN [Suspect]
     Active Substance: TOLVAPTAN
     Dosage: 15 MG
     Route: 048
     Dates: start: 20230929

REACTIONS (6)
  - Suicidal ideation [Unknown]
  - Major depression [Unknown]
  - Sleep disorder [Unknown]
  - Pollakiuria [Not Recovered/Not Resolved]
  - Dysuria [Unknown]
  - Fatigue [Unknown]

NARRATIVE: CASE EVENT DATE: 20231013
